FAERS Safety Report 13061126 (Version 1)
Quarter: 2016Q4

REPORT INFORMATION
  Report Type: Report from Study
  Country: US (occurrence: US)
  Receive Date: 20161226
  Receipt Date: 20161226
  Transmission Date: 20170207
  Serious: No
  Sender: FDA-Public Use
  Company Number: US-AMGEN-USASP2016177114

PATIENT
  Age: 97 Year
  Sex: Female

DRUGS (2)
  1. ENBREL [Suspect]
     Active Substance: ETANERCEPT
     Indication: RHEUMATOID ARTHRITIS
     Dosage: 50 MG, QWK
     Route: 065
  2. DIPHENHYDRAMINE. [Concomitant]
     Active Substance: DIPHENHYDRAMINE
     Dosage: UNK

REACTIONS (13)
  - Toothache [Unknown]
  - Injection site erythema [Unknown]
  - Macule [Unknown]
  - Erythema [Unknown]
  - Gingival pain [Unknown]
  - Rash erythematous [Unknown]
  - Injection site pain [Unknown]
  - Injection site urticaria [Unknown]
  - Pruritus [Unknown]
  - Injection site rash [Unknown]
  - Skin warm [Unknown]
  - Injection site pruritus [Unknown]
  - Injection site warmth [Unknown]

NARRATIVE: CASE EVENT DATE: 20161212
